FAERS Safety Report 16134592 (Version 1)
Quarter: 2019Q1

REPORT INFORMATION
  Report Type: Spontaneous
  Country: AT (occurrence: AT)
  Receive Date: 20190329
  Receipt Date: 20190329
  Transmission Date: 20190418
  Serious: Yes (Other)
  Sender: FDA-Public Use
  Company Number: AT-PFIZER INC-2019019285

PATIENT
  Sex: Male
  Weight: 200 kg

DRUGS (10)
  1. TYGACIL [Suspect]
     Active Substance: TIGECYCLINE
     Indication: ACINETOBACTER INFECTION
     Dosage: UNK
     Dates: start: 2018, end: 2018
  2. RIFOLDIN [Suspect]
     Active Substance: RIFAMPIN
     Indication: ACINETOBACTER INFECTION
     Dosage: UNK
     Dates: start: 2018, end: 2018
  3. RIFOLDIN [Suspect]
     Active Substance: RIFAMPIN
     Indication: ANTIBIOTIC THERAPY
  4. SULBACTAM SODIUM [Suspect]
     Active Substance: SULBACTAM SODIUM
     Indication: ACINETOBACTER INFECTION
     Dosage: UNK
     Dates: start: 2018, end: 2018
  5. AZITHROMYCIN ANHYDROUS. [Suspect]
     Active Substance: AZITHROMYCIN ANHYDROUS
     Indication: ANTIBIOTIC THERAPY
  6. TYGACIL [Suspect]
     Active Substance: TIGECYCLINE
     Indication: ANTIBIOTIC THERAPY
  7. AZITHROMYCIN ANHYDROUS. [Suspect]
     Active Substance: AZITHROMYCIN ANHYDROUS
     Indication: ACINETOBACTER INFECTION
     Dosage: UNK
     Dates: start: 2018, end: 2018
  8. SULBACTAM SODIUM [Suspect]
     Active Substance: SULBACTAM SODIUM
     Indication: ANTIBIOTIC THERAPY
  9. COLISTIN [Suspect]
     Active Substance: COLISTIN
     Indication: ACINETOBACTER INFECTION
     Dosage: UNK
     Route: 042
     Dates: start: 2018, end: 2018
  10. COLISTIN [Suspect]
     Active Substance: COLISTIN
     Indication: ANTIBIOTIC THERAPY
     Dosage: UNK (AEROSOL)
     Dates: start: 2018, end: 2018

REACTIONS (6)
  - Anuria [Unknown]
  - Device related sepsis [Unknown]
  - Drug ineffective [Unknown]
  - Condition aggravated [Unknown]
  - Candida infection [Unknown]
  - C-reactive protein increased [Unknown]

NARRATIVE: CASE EVENT DATE: 2018
